FAERS Safety Report 4398904-1 (Version None)
Quarter: 2004Q2

REPORT INFORMATION
  Report Type: 
  Country: None (occurrence: None)
  Receive Date: 20040621
  Receipt Date: 20031229
  Transmission Date: 20050107
  Serious: Yes (Hospitalization, Other)
  Sender: FDA-Public Use
  Company Number: USA-2003-0006982

PATIENT
  Age: 51 Year
  Sex: Male
  Weight: 83.9 kg

DRUGS (5)
  1. OXYCONTIN [Suspect]
     Indication: PAIN
     Dosage: 20 MG, Q12H,
     Dates: start: 20021001
  2. OXYCODONE HCL [Suspect]
     Indication: PAIN
  3. ETHANOL (ETHANOL) [Suspect]
  4. XANAX [Suspect]
  5. SOMA [Suspect]

REACTIONS (4)
  - DEPRESSION [None]
  - DRUG ABUSER [None]
  - DRUG DEPENDENCE [None]
  - OVERDOSE [None]
